FAERS Safety Report 24312996 (Version 1)
Quarter: 2024Q3

REPORT INFORMATION
  Report Type: Spontaneous
  Country: US (occurrence: None)
  Receive Date: 20240912
  Receipt Date: 20240912
  Transmission Date: 20241016
  Serious: Yes (Life-Threatening)
  Sender: Public
  Company Number: None

PATIENT
  Age: 74 Year
  Sex: Male
  Weight: 103.5 kg

DRUGS (9)
  1. DULERA [Suspect]
     Active Substance: FORMOTEROL FUMARATE DIHYDRATE\MOMETASONE FUROATE
     Indication: Chronic obstructive pulmonary disease
     Dosage: OTHER QUANTITY : 2 PUFF(S);?FREQUENCY : TWICE A DAY;?
     Route: 055
     Dates: start: 20240224, end: 20240810
  2. ATENOLOL [Concomitant]
     Active Substance: ATENOLOL
  3. XANAX [Concomitant]
     Active Substance: ALPRAZOLAM
  4. HYDROCHLOROTHIAZIDE [Concomitant]
     Active Substance: HYDROCHLOROTHIAZIDE
  5. APIXABAN [Concomitant]
     Active Substance: APIXABAN
  6. POTASSIUM [Concomitant]
     Active Substance: POTASSIUM
  7. VITAMIN C [Concomitant]
     Active Substance: ASCORBIC ACID
  8. B12 [Concomitant]
  9. VITAMIN D3 [Concomitant]
     Active Substance: CHOLECALCIFEROL

REACTIONS (3)
  - Oedema peripheral [None]
  - Total lung capacity decreased [None]
  - Swelling [None]

NARRATIVE: CASE EVENT DATE: 20240902
